FAERS Safety Report 10547244 (Version 1)
Quarter: 2014Q4

REPORT INFORMATION
  Report Type: Spontaneous
  Country: US (occurrence: US)
  Receive Date: 20141028
  Receipt Date: 20141028
  Transmission Date: 20150529
  Serious: No
  Sender: FDA-Public Use
  Company Number: US-009507513-1410USA007287

PATIENT
  Sex: Female

DRUGS (1)
  1. ASMANEX [Suspect]
     Active Substance: MOMETASONE FUROATE
     Indication: RESPIRATORY DISORDER
     Dosage: 220 MG, QD
     Route: 055

REACTIONS (4)
  - Laryngitis [Recovering/Resolving]
  - Product quality issue [Unknown]
  - Choking [Recovering/Resolving]
  - Retching [Recovering/Resolving]
